FAERS Safety Report 21760192 (Version 1)
Quarter: 2022Q4

REPORT INFORMATION
  Report Type: Spontaneous
  Country: US (occurrence: US)
  Receive Date: 20221221
  Receipt Date: 20221221
  Transmission Date: 20230112
  Serious: No
  Sender: FDA-Public Use
  Company Number: US-ABBVIE-4217612

PATIENT
  Sex: Female

DRUGS (1)
  1. HUMIRA [Suspect]
     Active Substance: ADALIMUMAB
     Indication: Vogt-Koyanagi-Harada disease
     Route: 058

REACTIONS (5)
  - Injection site haemorrhage [Unknown]
  - Visual impairment [Unknown]
  - Nausea [Unknown]
  - Unevaluable event [Not Recovered/Not Resolved]
  - Off label use [Unknown]
